FAERS Safety Report 25305123 (Version 1)
Quarter: 2025Q2

REPORT INFORMATION
  Report Type: Spontaneous
  Country: US (occurrence: US)
  Receive Date: 20250513
  Receipt Date: 20250513
  Transmission Date: 20250716
  Serious: Yes (Other)
  Sender: ALMIRALL, LLC
  Company Number: US-ALMIRALL, LLC-2025AQU000019

PATIENT

DRUGS (1)
  1. SEYSARA [Suspect]
     Active Substance: SARECYCLINE HYDROCHLORIDE
     Indication: Transient acantholytic dermatosis
     Dosage: 150 MILLIGRAM, QD
     Route: 048

REACTIONS (2)
  - Blindness [Unknown]
  - Off label use [Unknown]
